FAERS Safety Report 9336456 (Version 2)
Quarter: 2013Q3

REPORT INFORMATION
  Report Type: Spontaneous
  Country: DE (occurrence: DE)
  Receive Date: 20130607
  Receipt Date: 20130904
  Transmission Date: 20140515
  Serious: Yes (Life-Threatening, Hospitalization)
  Sender: FDA-Public Use
  Company Number: DE-BAYER-2013-068542

PATIENT
  Age: 68 Year
  Sex: Female
  Weight: 100 kg

DRUGS (2)
  1. AVALOX [Suspect]
     Indication: BRONCHITIS
     Dosage: 400 MG, QD
     Dates: start: 20130330, end: 20130402
  2. LORAZEPAM [Concomitant]
     Indication: INITIAL INSOMNIA
     Dosage: 2.5 MG, QD

REACTIONS (3)
  - Hyponatraemia [Recovering/Resolving]
  - Somnolence [Recovering/Resolving]
  - Inappropriate antidiuretic hormone secretion [Recovering/Resolving]
